FAERS Safety Report 24586715 (Version 1)
Quarter: 2024Q4

REPORT INFORMATION
  Report Type: Spontaneous
  Country: GB (occurrence: GB)
  Receive Date: 20241107
  Receipt Date: 20241107
  Transmission Date: 20250115
  Serious: Yes (Hospitalization, Disabling, Other)
  Sender: LEO PHARM
  Company Number: None

PATIENT
  Age: 42 Year
  Sex: Female

DRUGS (7)
  1. PROTOPIC [Suspect]
     Active Substance: TACROLIMUS
     Indication: Rash
     Dosage: AS NEEDED
     Dates: start: 20190505
  2. PROTOPIC [Suspect]
     Active Substance: TACROLIMUS
     Indication: Rash
     Dosage: AS NEEDED
     Dates: start: 20190505
  3. PROTOPIC [Suspect]
     Active Substance: TACROLIMUS
     Indication: Rash
     Dosage: AS NEEDED
     Dates: start: 20190505
  4. PROTOPIC [Suspect]
     Active Substance: TACROLIMUS
     Indication: Rash
     Dosage: AS NEEDED
     Dates: start: 20190505
  5. PROTOPIC [Suspect]
     Active Substance: TACROLIMUS
     Indication: Rash
     Dosage: AS NEEDED
     Dates: start: 20190505
  6. PROTOPIC [Suspect]
     Active Substance: TACROLIMUS
     Indication: Rash
     Dosage: AS NEEDED
     Dates: start: 20190505
  7. PROTOPIC [Suspect]
     Active Substance: TACROLIMUS
     Indication: Rash
     Dosage: AS NEEDED
     Dates: start: 20190505

REACTIONS (8)
  - Medication error [Unknown]
  - Dry skin [Not Recovered/Not Resolved]
  - Skin weeping [Not Recovered/Not Resolved]
  - Erythema [Not Recovered/Not Resolved]
  - Hot flush [Not Recovered/Not Resolved]
  - Rash [Not Recovered/Not Resolved]
  - Pruritus [Not Recovered/Not Resolved]
  - Skin exfoliation [Not Recovered/Not Resolved]

NARRATIVE: CASE EVENT DATE: 20210101
